FAERS Safety Report 20335134 (Version 1)
Quarter: 2022Q1

REPORT INFORMATION
  Report Type: Report from Study
  Country: US (occurrence: US)
  Receive Date: 20220114
  Receipt Date: 20220114
  Transmission Date: 20220423
  Serious: No
  Sender: FDA-Public Use
  Company Number: US-BEH-2022140539

PATIENT
  Age: 47 Year
  Sex: Female

DRUGS (3)
  1. HIZENTRA [Suspect]
     Active Substance: HUMAN IMMUNOGLOBULIN G
     Dosage: UNK
     Route: 065
     Dates: start: 2021
  2. HIZENTRA [Suspect]
     Active Substance: HUMAN IMMUNOGLOBULIN G
     Dosage: UNK
     Route: 065
     Dates: start: 2022
  3. HIZENTRA [Suspect]
     Active Substance: HUMAN IMMUNOGLOBULIN G
     Dosage: 12 GRAM
     Route: 065

REACTIONS (10)
  - Injection site swelling [Unknown]
  - Recalled product administered [Unknown]
  - Injection site rash [Unknown]
  - Recalled product administered [Unknown]
  - Injection site swelling [Recovering/Resolving]
  - Recalled product administered [Recovering/Resolving]
  - Injection site rash [Recovering/Resolving]
  - Recalled product administered [Recovering/Resolving]
  - No adverse event [Recovering/Resolving]
  - Product distribution issue [Recovering/Resolving]

NARRATIVE: CASE EVENT DATE: 20210101
